FAERS Safety Report 8832866 (Version 1)
Quarter: 2012Q4

REPORT INFORMATION
  Report Type: Spontaneous
  Country: US (occurrence: None)
  Receive Date: 20121009
  Receipt Date: 20121009
  Transmission Date: 20130627
  Serious: Yes (Life-Threatening, Hospitalization, Other)
  Sender: FDA-Public Use
  Company Number: None

PATIENT
  Age: 61 Year
  Sex: Male
  Weight: 117.6 kg

DRUGS (1)
  1. PRASUGREL [Suspect]
     Indication: CORONARY STENT PLACEMENT
     Route: 048
     Dates: start: 20110922, end: 20120121

REACTIONS (3)
  - Acute myocardial infarction [None]
  - Thrombosis in device [None]
  - Treatment failure [None]
